FAERS Safety Report 18056451 (Version 1)
Quarter: 2020Q3

REPORT INFORMATION
  Report Type: Spontaneous
  Country: US (occurrence: US)
  Receive Date: 20200722
  Receipt Date: 20200722
  Transmission Date: 20201103
  Serious: Yes (Death, Hospitalization, Other)
  Sender: FDA-Public Use
  Company Number: US-PURDUE-USA-2020-0158783

PATIENT
  Age: 32 Year
  Sex: Male

DRUGS (1)
  1. OXYCONTIN [Suspect]
     Active Substance: OXYCODONE HYDROCHLORIDE
     Indication: PRODUCT USED FOR UNKNOWN INDICATION
     Dosage: UNK
     Route: 048
     Dates: end: 20060624

REACTIONS (5)
  - Death [Fatal]
  - Prescribed overdose [Unknown]
  - Somnolence [Unknown]
  - Surgery [Unknown]
  - Drug dependence [Unknown]

NARRATIVE: CASE EVENT DATE: 20060624
